FAERS Safety Report 10180833 (Version 1)
Quarter: 2014Q2

REPORT INFORMATION
  Report Type: Spontaneous
  Country: US (occurrence: US)
  Receive Date: 20140519
  Receipt Date: 20140519
  Transmission Date: 20141212
  Serious: No
  Sender: FDA-Public Use
  Company Number: US-AMGEN INC.-USASP2014011901

PATIENT
  Age: 58 Year
  Sex: Female

DRUGS (8)
  1. PROLIA [Suspect]
     Indication: OSTEOPOROSIS POSTMENOPAUSAL
     Dosage: 60 MG/ML, UNK
     Route: 065
  2. NEURONTIN [Concomitant]
     Indication: BACK PAIN
  3. NEURONTIN [Concomitant]
     Indication: NEURALGIA
  4. ATENOLOL [Concomitant]
     Indication: HEART RATE IRREGULAR
  5. SYNTHROID [Concomitant]
  6. AMITIZA [Concomitant]
  7. PRAVASTATIN [Concomitant]
  8. CALCIUM [Concomitant]

REACTIONS (9)
  - Limb discomfort [Unknown]
  - Blood calcium increased [Unknown]
  - Parathyroid disorder [Unknown]
  - Osteoarthritis [Unknown]
  - Asthenia [Unknown]
  - Bone pain [Unknown]
  - Fatigue [Unknown]
  - Back pain [Unknown]
  - Sciatica [Unknown]
